FAERS Safety Report 20004456 (Version 1)
Quarter: 2021Q4

REPORT INFORMATION
  Report Type: Spontaneous
  Country: GB (occurrence: GB)
  Receive Date: 20211027
  Receipt Date: 20211027
  Transmission Date: 20220303
  Serious: Yes (Congenital Anomaly, Other)
  Sender: FDA-Public Use
  Company Number: None

PATIENT
  Sex: Female

DRUGS (2)
  1. ADRENALIN [Suspect]
     Active Substance: EPINEPHRINE
     Indication: Product used for unknown indication
     Dosage: UNK
  2. PFIZER-BIONTECH COVID-19 VACCINE [Suspect]
     Active Substance: TOZINAMERAN
     Indication: COVID-19 immunisation
     Dosage: 1 DOSAGE FORM, TOTAL(DOSE 1, SINGLE)
     Dates: start: 20210122, end: 20210122

REACTIONS (10)
  - Throat tightness [Unknown]
  - Oesophageal stenosis [Unknown]
  - Chest discomfort [Unknown]
  - Anxiety [Unknown]
  - Syncope [Recovered/Resolved]
  - Tachycardia [Recovered/Resolved]
  - Cardiac murmur [Recovered/Resolved]
  - Hypertension [Recovered/Resolved]
  - Feeling hot [Unknown]
  - Heart rate irregular [Unknown]

NARRATIVE: CASE EVENT DATE: 20210122
